FAERS Safety Report 4390662-X (Version None)
Quarter: 2004Q2

REPORT INFORMATION
  Report Type: 
  Country: None (occurrence: None)
  Receive Date: 20040630
  Receipt Date: 20040615
  Transmission Date: 20050107
  Serious: Yes (Death, Hospitalization)
  Sender: FDA-Public Use
  Company Number: K200400895

PATIENT
  Age: 64 Year
  Sex: Male
  Weight: 63.5 kg

DRUGS (2)
  1. BICILLIN L-A [Suspect]
  2. PKC412A (CGP 41251 T30685+CAPS) CAPSULE, 200MG [Suspect]
     Indication: ACUTE MYELOID LEUKAEMIA
     Dosage: 200 MG, QD, ORAL
     Route: 048
     Dates: start: 20030915, end: 20030916

REACTIONS (14)
  - BLOOD CULTURE POSITIVE [None]
  - CEREBRAL INFARCTION [None]
  - DRUG HYPERSENSITIVITY [None]
  - HYPOTENSION [None]
  - LEUKOCYTOSIS [None]
  - MULTI-ORGAN FAILURE [None]
  - MYCOBACTERIUM AVIUM COMPLEX INFECTION [None]
  - NEUTROPENIA [None]
  - PYREXIA [None]
  - RASH ERYTHEMATOUS [None]
  - RASH MACULO-PAPULAR [None]
  - RENAL FAILURE [None]
  - RESPIRATORY FAILURE [None]
  - STAPHYLOCOCCAL INFECTION [None]
